FAERS Safety Report 14405273 (Version 2)
Quarter: 2019Q1

REPORT INFORMATION
  Report Type: Spontaneous
  Country: US (occurrence: US)
  Receive Date: 20180118
  Receipt Date: 20190112
  Transmission Date: 20190417
  Serious: Yes (Other)
  Sender: FDA-Public Use
  Company Number: US-AMGEN-USASP2018003394

PATIENT
  Age: 88 Year
  Sex: Female

DRUGS (6)
  1. VITAMIN D3 [Concomitant]
     Active Substance: CHOLECALCIFEROL
  2. BABY ASPIRIN [Concomitant]
     Active Substance: ASPIRIN
     Dosage: UNK
  3. CALCIUM [Concomitant]
     Active Substance: CALCIUM
     Dosage: UNK
  4. PRAVASTATIN. [Concomitant]
     Active Substance: PRAVASTATIN
     Indication: BLOOD CHOLESTEROL ABNORMAL
     Dosage: UNK
  5. VITAMIN D [Concomitant]
     Active Substance: CHOLECALCIFEROL
     Dosage: UNK
  6. PROLIA [Suspect]
     Active Substance: DENOSUMAB
     Indication: OSTEOPOROSIS POSTMENOPAUSAL
     Dosage: UNK UNK, Q6MO
     Route: 065
     Dates: start: 201501

REACTIONS (19)
  - Body height decreased [Not Recovered/Not Resolved]
  - Wheelchair user [Unknown]
  - Contusion [Unknown]
  - Arthritis [Not Recovered/Not Resolved]
  - Lower limb fracture [Unknown]
  - Fall [Unknown]
  - Walking aid user [Unknown]
  - Hypertonic bladder [Unknown]
  - Burning sensation [Unknown]
  - Arthralgia [Unknown]
  - Insomnia [Unknown]
  - Drug effect incomplete [Unknown]
  - Swelling [Unknown]
  - Back pain [Unknown]
  - Immobile [Recovered/Resolved]
  - Blood calcium increased [Unknown]
  - Corrective lens user [Unknown]
  - Blood calcium decreased [Unknown]
  - Pain in extremity [Unknown]

NARRATIVE: CASE EVENT DATE: 2017
